FAERS Safety Report 12085416 (Version 3)
Quarter: 2016Q4

REPORT INFORMATION
  Report Type: Spontaneous
  Country: FR (occurrence: FR)
  Receive Date: 20160217
  Receipt Date: 20161110
  Transmission Date: 20170206
  Serious: Yes (Hospitalization, Other)
  Sender: FDA-Public Use
  Company Number: FR-BRISTOL-MYERS SQUIBB COMPANY-BMS-2016-011148

PATIENT
  Age: 66 Year
  Sex: Female
  Weight: 50 kg

DRUGS (9)
  1. CRESTOR [Concomitant]
     Active Substance: ROSUVASTATIN CALCIUM
     Indication: HYPERCHOLESTEROLAEMIA
     Route: 048
  2. MITOTANE [Suspect]
     Active Substance: MITOTANE
     Indication: PRODUCT USED FOR UNKNOWN INDICATION
     Dosage: 2 DF, QD
     Route: 048
     Dates: start: 201507, end: 20151106
  3. MITOTANE [Suspect]
     Active Substance: MITOTANE
     Indication: ADRENOCORTICAL CARCINOMA
     Dosage: 2 DF, TID
     Route: 048
     Dates: start: 20150511, end: 20151106
  4. MITOTANE [Suspect]
     Active Substance: MITOTANE
     Indication: PRODUCT USED FOR UNKNOWN INDICATION
     Dosage: 2 DF, BID
     Route: 048
     Dates: start: 201506, end: 201507
  5. AUGMENTIN [Concomitant]
     Active Substance: AMOXICILLIN\CLAVULANATE POTASSIUM
     Indication: PULMONARY MASS
     Route: 065
  6. HYDROCORTISONE. [Concomitant]
     Active Substance: HYDROCORTISONE
     Indication: ADRENOCORTICOTROPIC HORMONE DEFICIENCY
     Dosage: UNK
     Route: 065
     Dates: start: 2014
  7. KARDEGIC [Concomitant]
     Active Substance: ASPIRIN LYSINE
     Indication: PRODUCT USED FOR UNKNOWN INDICATION
     Route: 065
  8. LUMIGAN [Concomitant]
     Active Substance: BIMATOPROST
     Indication: PRODUCT USED FOR UNKNOWN INDICATION
     Route: 065
  9. IMOVANE [Concomitant]
     Active Substance: ZOPICLONE
     Indication: PRODUCT USED FOR UNKNOWN INDICATION
     Dosage: UNK, PRN
     Route: 065

REACTIONS (12)
  - Hypercholesterolaemia [Recovered/Resolved]
  - Memory impairment [Recovering/Resolving]
  - Abnormal behaviour [Recovered/Resolved]
  - Cognitive disorder [Recovering/Resolving]
  - Gamma-glutamyltransferase increased [Recovered/Resolved]
  - Cholestasis [Recovered/Resolved]
  - Lipid metabolism disorder [Recovered/Resolved]
  - Hypertriglyceridaemia [Recovered/Resolved]
  - Hepatocellular injury [Unknown]
  - Drug level above therapeutic [Unknown]
  - Hypothyroidism [Recovering/Resolving]
  - Bronchiectasis [Unknown]

NARRATIVE: CASE EVENT DATE: 201506
